FAERS Safety Report 22363541 (Version 1)
Quarter: 2023Q2

REPORT INFORMATION
  Report Type: Spontaneous
  Country: US (occurrence: US)
  Receive Date: 20230525
  Receipt Date: 20230525
  Transmission Date: 20230721
  Serious: No
  Sender: FDA-Public Use
  Company Number: US-TOLMAR, INC.-23US040035

PATIENT
  Age: 33 Year
  Sex: Male

DRUGS (5)
  1. JATENZO [Suspect]
     Active Substance: TESTOSTERONE UNDECANOATE
     Indication: Blood testosterone decreased
     Dosage: 237 MILLIGRAM, BID
     Route: 048
     Dates: start: 202303
  2. UNSPECIFIED INGREDIENT [Suspect]
     Active Substance: UNSPECIFIED INGREDIENT
     Indication: Blood testosterone decreased
     Dosage: ALMOST 20 YEARS
  3. ASPIRIN [Concomitant]
     Active Substance: ASPIRIN
     Indication: Prophylaxis
     Dosage: UNK, QD
     Route: 048
  4. BRILINTA [Concomitant]
     Active Substance: TICAGRELOR
     Indication: Stent placement
     Dosage: 90 MILLIGRAM, BID
     Route: 048
  5. METOPROLOL [Concomitant]
     Active Substance: METOPROLOL
     Indication: Hypertension
     Dosage: 12.5 UNK, QD

REACTIONS (3)
  - Dysphagia [Not Recovered/Not Resolved]
  - Retching [Recovered/Resolved]
  - Vomiting [Recovered/Resolved]

NARRATIVE: CASE EVENT DATE: 20230301
